FAERS Safety Report 14779259 (Version 2)
Quarter: 2018Q3

REPORT INFORMATION
  Report Type: Report from Study
  Country: ES (occurrence: ES)
  Receive Date: 20180419
  Receipt Date: 20180925
  Transmission Date: 20181010
  Serious: Yes (Hospitalization, Other)
  Sender: FDA-Public Use
  Company Number: ES-PFIZER INC-2018145272

PATIENT
  Age: 73 Year
  Sex: Male
  Weight: 81.6 kg

DRUGS (18)
  1. 5?FU /00098801/ [Suspect]
     Active Substance: FLUOROURACIL
     Dosage: 640 MG, CYCLIC
     Route: 040
     Dates: start: 20150617, end: 20150617
  2. ATORVASTATIN [Concomitant]
     Active Substance: ATORVASTATIN
     Dosage: 720 MG, (CYCLE 1)
     Dates: start: 2000
  3. IRINOTECAN HCL [Suspect]
     Active Substance: IRINOTECAN HYDROCHLORIDE
     Indication: COLORECTAL CANCER METASTATIC
     Dosage: 320 MG, CYCLIC (CYCLE 1)
     Route: 041
     Dates: start: 20150527, end: 20150527
  4. LYRICA [Concomitant]
     Active Substance: PREGABALIN
     Dosage: 640 MG, (CYCLE 2)
  5. 5?FU /00098801/ [Suspect]
     Active Substance: FLUOROURACIL
     Dosage: 4300 MG, CYCLIC
     Route: 041
     Dates: start: 20150527, end: 20150527
  6. IRINOTECAN HCL [Suspect]
     Active Substance: IRINOTECAN HYDROCHLORIDE
     Dosage: 290 MG, CYCLIC (CYCLE 2)
     Route: 041
     Dates: start: 20150617, end: 20150617
  7. CALCIUM FOLINATE [Suspect]
     Active Substance: LEUCOVORIN CALCIUM
     Dosage: 640 MG, CYCLIC, (DATE OF LAST CYCLE BEFORE ADVERSE REACTION, CYCLE 2)
     Route: 041
     Dates: start: 20150617, end: 20150617
  8. AFLIBERCEPT [Suspect]
     Active Substance: AFLIBERCEPT
     Dosage: 360 MG, CYCLIC (CYCLE 2)
     Route: 041
     Dates: start: 20150617, end: 20150617
  9. ESOMEPRAZOL /01479301/ [Concomitant]
     Active Substance: ESOMEPRAZOLE
     Indication: PROPHYLAXIS
     Dosage: 720 MG, CYCLE 1
     Dates: start: 2000
  10. CALCIUM FOLINATE [Suspect]
     Active Substance: LEUCOVORIN CALCIUM
     Indication: COLORECTAL CANCER METASTATIC
     Dosage: 720 MG, CYCLIC
     Route: 041
     Dates: start: 20150527, end: 20150527
  11. ATORVASTATIN [Concomitant]
     Active Substance: ATORVASTATIN
     Dosage: 640 MG, (CYCLE 2)
  12. SITAGLIPTIN PHOSPHATE [Concomitant]
     Active Substance: SITAGLIPTIN PHOSPHATE
     Dosage: 640 MG, (CYCLE 2)
  13. AFLIBERCEPT [Suspect]
     Active Substance: AFLIBERCEPT
     Indication: COLORECTAL CANCER METASTATIC
     Dosage: 360 MG, CYCLIC (CYCLE 1)
     Route: 041
     Dates: start: 20150527, end: 20150527
  14. 5?FU /00098801/ [Suspect]
     Active Substance: FLUOROURACIL
     Indication: COLORECTAL CANCER METASTATIC
     Dosage: 720 MG, CYCLIC
     Route: 040
     Dates: start: 20150527, end: 20150527
  15. LYRICA [Concomitant]
     Active Substance: PREGABALIN
     Dosage: 720 MG, (CYCLE 1)
     Dates: start: 20150526
  16. SITAGLIPTIN PHOSPHATE [Concomitant]
     Active Substance: SITAGLIPTIN PHOSPHATE
     Dosage: 720 MG, (CYCLE 1)
     Dates: start: 20130101
  17. 5?FU /00098801/ [Suspect]
     Active Substance: FLUOROURACIL
     Dosage: 3800 MG, CYCLIC
     Route: 041
     Dates: start: 20150617, end: 20150617
  18. ESOMEPRAZOL /01479301/ [Concomitant]
     Active Substance: ESOMEPRAZOLE
     Dosage: 640 MG, CYCLE 2

REACTIONS (5)
  - Cholecystitis acute [Recovered/Resolved]
  - Infection [Recovered/Resolved]
  - Abdominal pain [Recovered/Resolved]
  - Delirium [Recovered/Resolved]
  - Confusional state [Recovered/Resolved]

NARRATIVE: CASE EVENT DATE: 20150701
